FAERS Safety Report 21494007 (Version 1)
Quarter: 2022Q4

REPORT INFORMATION
  Report Type: Spontaneous
  Country: NL (occurrence: NL)
  Receive Date: 20221021
  Receipt Date: 20221021
  Transmission Date: 20230113
  Serious: Yes (Hospitalization)
  Sender: FDA-Public Use
  Company Number: None

PATIENT
  Sex: Male
  Weight: 87 kg

DRUGS (3)
  1. IBUPROFEN [Suspect]
     Active Substance: IBUPROFEN
     Indication: Pyrexia
     Dosage: 2 DAYS 3DD 400MG, FORM STRENGTH: 600 MG, FREQUENCY TIME : 8 HOURS, DURATION: 1 DAY, UNIT DOSE: 400 M
     Dates: start: 20211001, end: 20211002
  2. IBUPROFEN [Suspect]
     Active Substance: IBUPROFEN
     Dosage: 1800 MILLIGRAM DAILY; 3X A DAY 1 PIECE, FORM STRENGTH: 600 MG, DURATION: 3 DAY, UNIT DOSE: 800 MG, B
     Dates: start: 20210927, end: 20210930
  3. VENTOLIN [Concomitant]
     Active Substance: ALBUTEROL SULFATE
     Indication: Product used for unknown indication
     Dosage: 200 UG/DOSE (MICROGRAMS PER DOSE), SALBUTAMOL INHALATION POWDER 200UG/DO / VENTOLIN DISKUS INHPDR 20

REACTIONS (1)
  - Renal failure [Recovered/Resolved]
